FAERS Safety Report 6799506-X (Version None)
Quarter: 2010Q2

REPORT INFORMATION
  Report Type: 
  Country: None (occurrence: None)
  Receive Date: 20100624
  Receipt Date: 20100608
  Transmission Date: 20101027
  Serious: No
  Sender: FDA-Public Use
  Company Number: B0660927A

PATIENT
  Age: 19 Year
  Sex: Male

DRUGS (1)
  1. SALBUTAMOL SULPHATE NEBULISER SOLUTION (GENERIC) (ALBUTEROL SULFATE) [Suspect]
     Indication: ASTHMA
     Dosage: INHALED
     Route: 055

REACTIONS (4)
  - COUGH [None]
  - DYSPNOEA [None]
  - FOREIGN BODY ASPIRATION [None]
  - WHEEZING [None]
